FAERS Safety Report 23108742 (Version 1)
Quarter: 2023Q4

REPORT INFORMATION
  Report Type: Spontaneous
  Country: US (occurrence: US)
  Receive Date: 20231026
  Receipt Date: 20231026
  Transmission Date: 20240109
  Serious: No
  Sender: FDA-Public Use
  Company Number: US-OPELLA-2023OHG011706

PATIENT
  Age: 64 Year
  Sex: Female

DRUGS (6)
  1. ALLEGRA [Suspect]
     Active Substance: FEXOFENADINE HYDROCHLORIDE
     Indication: Urticaria
     Dosage: UNK
     Dates: start: 2022
  2. SUBOXONE [Concomitant]
     Active Substance: BUPRENORPHINE HYDROCHLORIDE\NALOXONE HYDROCHLORIDE
     Dosage: UNK
  3. CLONAZEPAM [Concomitant]
     Active Substance: CLONAZEPAM
     Dosage: UNK
  4. MIRTAZAPINE [Concomitant]
     Active Substance: MIRTAZAPINE
     Dosage: UNK
  5. HYDROXYCHLOROQUINE [Concomitant]
     Active Substance: HYDROXYCHLOROQUINE
     Dosage: UNK
  6. PREDNISONE [Concomitant]
     Active Substance: PREDNISONE
     Dosage: UNK

REACTIONS (1)
  - Dry mouth [Unknown]

NARRATIVE: CASE EVENT DATE: 20220101
